FAERS Safety Report 21613781 (Version 2)
Quarter: 2022Q4

REPORT INFORMATION
  Report Type: Report from Study
  Country: JP (occurrence: JP)
  Receive Date: 20221118
  Receipt Date: 20221208
  Transmission Date: 20230112
  Serious: Yes (Other)
  Sender: FDA-Public Use
  Company Number: JP-Accord-287166

PATIENT
  Age: 74 Year
  Sex: Male

DRUGS (3)
  1. CISPLATIN [Suspect]
     Active Substance: CISPLATIN
     Indication: Lung squamous cell carcinoma stage III
     Dosage: RECEIVED 1 CYCLE
  2. GEMCITABINE [Suspect]
     Active Substance: GEMCITABINE
     Indication: Lung squamous cell carcinoma stage III
     Dosage: RECEIVED 1 CYCLE
  3. NECITUMUMAB [Suspect]
     Active Substance: NECITUMUMAB
     Indication: Squamous cell carcinoma of lung
     Dosage: RECEIVED 1 CYCLE

REACTIONS (5)
  - Pneumonia [Unknown]
  - Febrile neutropenia [Unknown]
  - Thrombocytopenia [Unknown]
  - Hypokalaemia [Unknown]
  - Hyponatraemia [Unknown]
